FAERS Safety Report 4794483-5 (Version None)
Quarter: 2005Q4

REPORT INFORMATION
  Report Type: 
  Country: None (occurrence: None)
  Receive Date: 20051011
  Receipt Date: 20051003
  Transmission Date: 20060501
  Serious: Yes (Hospitalization)
  Sender: FDA-Public Use
  Company Number: 200518836GDDC

PATIENT
  Age: 68 Year
  Sex: Female

DRUGS (5)
  1. THEOPHYLLINE [Suspect]
  2. PREDNISOLONE [Suspect]
     Indication: ASTHMA
  3. METFORMIN [Suspect]
  4. MONTELUKAST [Suspect]
  5. FLIXOTIDE [Suspect]

REACTIONS (2)
  - ESCHERICHIA INFECTION [None]
  - PERITONITIS BACTERIAL [None]
